FAERS Safety Report 14107472 (Version 1)
Quarter: 2017Q4

REPORT INFORMATION
  Report Type: Spontaneous
  Country: SE (occurrence: SE)
  Receive Date: 20171019
  Receipt Date: 20171019
  Transmission Date: 20180321
  Serious: Yes (Life-Threatening, Hospitalization, Other)
  Sender: FDA-Public Use
  Company Number: SE-MYLANLABS-2017M1066440

PATIENT
  Age: 54 Year
  Sex: Male

DRUGS (1)
  1. SERTRALINE [Suspect]
     Active Substance: SERTRALINE HYDROCHLORIDE
     Indication: PRODUCT USED FOR UNKNOWN INDICATION
     Dosage: UNK

REACTIONS (8)
  - Hypoglycaemic coma [Unknown]
  - Dry mouth [Unknown]
  - Headache [Unknown]
  - Anxiety [Unknown]
  - Blood glucose fluctuation [Unknown]
  - Dizziness [Unknown]
  - Withdrawal syndrome [Unknown]
  - Nightmare [Unknown]
